FAERS Safety Report 5407730-3 (Version None)
Quarter: 2007Q3

REPORT INFORMATION
  Report Type: 
  Country: None (occurrence: None)
  Receive Date: 20070713
  Receipt Date: 20070601
  Transmission Date: 20080115
  Serious: No
  Sender: FDA-Public Use
  Company Number: 2007SP002066

PATIENT
  Age: 73 Year
  Sex: Female
  Weight: 63.5036 kg

DRUGS (3)
  1. LUNESTA [Suspect]
     Dosage: 2 MG;HS;ORAL
     Route: 048
     Dates: start: 20070419
  2. PULMICORT [Concomitant]
  3. XOPENEX [Concomitant]

REACTIONS (3)
  - HYPERSENSITIVITY [None]
  - RHINORRHOEA [None]
  - TENSION HEADACHE [None]
